FAERS Safety Report 12664495 (Version 2)
Quarter: 2016Q3

REPORT INFORMATION
  Report Type: Spontaneous
  Country: US (occurrence: US)
  Receive Date: 20160818
  Receipt Date: 20160829
  Transmission Date: 20161109
  Serious: No
  Sender: FDA-Public Use
  Company Number: US-PFIZER INC-2016379366

PATIENT
  Sex: Female

DRUGS (1)
  1. XALKORI [Suspect]
     Active Substance: CRIZOTINIB
     Dosage: UNK
     Dates: start: 2011

REACTIONS (2)
  - Oedema peripheral [Not Recovered/Not Resolved]
  - Blood albumin decreased [Unknown]

NARRATIVE: CASE EVENT DATE: 2014
